FAERS Safety Report 25785326 (Version 1)
Quarter: 2025Q3

REPORT INFORMATION
  Report Type: Spontaneous
  Country: US (occurrence: US)
  Receive Date: 20250910
  Receipt Date: 20250910
  Transmission Date: 20251021
  Serious: No
  Sender: BRISTOL-MYERS SQUIBB COMPANY
  Company Number: US-BRISTOL-MYERS SQUIBB COMPANY-2025-124735

PATIENT
  Age: 32 Year
  Sex: Male

DRUGS (2)
  1. COBENFY [Suspect]
     Active Substance: TROSPIUM CHLORIDE\XANOMELINE
     Indication: Schizophrenia
     Dosage: DOSE: 50-20 MG
     Dates: start: 20250804, end: 20250903
  2. COBENFY [Suspect]
     Active Substance: TROSPIUM CHLORIDE\XANOMELINE
     Dosage: DOSE: 100-20 MG
     Dates: start: 20250904, end: 20250906

REACTIONS (1)
  - Malaise [Recovered/Resolved]

NARRATIVE: CASE EVENT DATE: 20250805
